FAERS Safety Report 8100740-7 (Version None)
Quarter: 2012Q1

REPORT INFORMATION
  Report Type: 
  Country: None (occurrence: None)
  Receive Date: 20120126
  Receipt Date: 20110816
  Transmission Date: 20120608
  Serious: Yes (Life-Threatening, Other)
  Sender: FDA-Public Use
  Company Number: GB-023530

PATIENT
  Age: 8 Year
  Sex: Female

DRUGS (5)
  1. METHOTREXATE [Suspect]
     Indication: PROPHYLAXIS AGAINST GRAFT VERSUS HOST DISEASE
  2. CYCLOSPORINE [Suspect]
     Indication: PROPHYLAXIS AGAINST GRAFT VERSUS HOST DISEASE
  3. BUSULFAN [Suspect]
     Indication: BONE MARROW CONDITIONING REGIMEN
     Dosage: TABLET 14 MG/KG
  4. CYCLOPHOSPHAMIDE [Suspect]
     Indication: BONE MARROW CONDITIONING REGIMEN
     Dosage: 200 MG/KG
  5. ALEMTUZUMAB [Suspect]
     Indication: BONE MARROW CONDITIONING REGIMEN
     Dosage: 0.3 MG/KG

REACTIONS (16)
  - BACTERIAL SEPSIS [None]
  - TOXICITY TO VARIOUS AGENTS [None]
  - PULMONARY VENO-OCCLUSIVE DISEASE [None]
  - PULMONARY HYPERTENSION [None]
  - HAEMODIALYSIS [None]
  - CYTOMEGALOVIRUS INFECTION [None]
  - RENAL IMPAIRMENT [None]
  - HEPATIC FUNCTION ABNORMAL [None]
  - MUCOSAL INFLAMMATION [None]
  - ADENOVIRUS INFECTION [None]
  - RESPIRATORY FAILURE [None]
  - MALAISE [None]
  - PULMONARY HAEMORRHAGE [None]
  - PNEUMONITIS [None]
  - METHYLOBACTERIUM INFECTION [None]
  - IDIOPATHIC PNEUMONIA SYNDROME [None]
